FAERS Safety Report 8003086-0 (Version None)
Quarter: 2011Q4

REPORT INFORMATION
  Report Type: 
  Country: None (occurrence: None)
  Receive Date: 20111222
  Receipt Date: 20111212
  Transmission Date: 20120403
  Serious: Yes (Hospitalization, Other)
  Sender: FDA-Public Use
  Company Number: FR-JNJFOC-20111205640

PATIENT
  Age: 38 Year
  Sex: Female

DRUGS (4)
  1. REMICADE [Suspect]
     Indication: CROHN'S DISEASE
     Route: 042
     Dates: start: 20090301, end: 20110201
  2. PENTASA [Concomitant]
  3. REMICADE [Suspect]
     Indication: ANKYLOSING SPONDYLITIS
     Route: 042
     Dates: start: 20090301, end: 20110201
  4. IMURAN [Concomitant]

REACTIONS (9)
  - HOSPITALISATION [None]
  - HEADACHE [None]
  - URINARY TRACT INFECTION [None]
  - MONOPLEGIA [None]
  - VASCULAR OCCLUSION [None]
  - PYELONEPHRITIS [None]
  - WEIGHT DECREASED [None]
  - ONYCHOMADESIS [None]
  - BRONCHITIS [None]
